FAERS Safety Report 17409988 (Version 11)
Quarter: 2021Q2

REPORT INFORMATION
  Report Type: Spontaneous
  Country: CA (occurrence: CA)
  Receive Date: 20200212
  Receipt Date: 20210518
  Transmission Date: 20210716
  Serious: Yes (Other)
  Sender: FDA-Public Use
  Company Number: CA-PFIZER INC-2020025886

PATIENT
  Age: 63 Year
  Sex: Female

DRUGS (13)
  1. XELJANZ [Suspect]
     Active Substance: TOFACITINIB CITRATE
     Dosage: 10 MG, 2X/DAY
     Route: 048
     Dates: start: 2020, end: 2020
  2. CORTISONE [Concomitant]
     Active Substance: CORTISONE
     Dosage: UNK
  3. PREDNISONE. [Concomitant]
     Active Substance: PREDNISONE
     Dosage: 40 MG, 1X/DAY
     Dates: start: 20191212
  4. PREDNISONE. [Concomitant]
     Active Substance: PREDNISONE
     Dosage: 7.5 MG, 1X/DAY
     Dates: end: 20200206
  5. CALCIUM [Concomitant]
     Active Substance: CALCIUM
     Indication: COLITIS ULCERATIVE
     Dosage: UNK
  6. XELJANZ [Suspect]
     Active Substance: TOFACITINIB CITRATE
     Dosage: 5 MG, 2X/DAY
     Route: 048
     Dates: start: 20200324, end: 20200331
  7. XELJANZ [Suspect]
     Active Substance: TOFACITINIB CITRATE
     Dosage: 15 MG, 1X/DAY (5 MG ONCE DAILY + 10 MG ONCE DAILY)
     Route: 048
     Dates: start: 202006, end: 2020
  8. XELJANZ [Suspect]
     Active Substance: TOFACITINIB CITRATE
     Dosage: 5 MG IN THE MORNING + 10 MG IN THE EVENING
     Route: 048
     Dates: start: 202105
  9. XELJANZ [Suspect]
     Active Substance: TOFACITINIB CITRATE
     Indication: COLITIS ULCERATIVE
     Dosage: 10 MG, 2X/DAY
     Route: 048
     Dates: start: 20200123, end: 20200323
  10. XELJANZ [Suspect]
     Active Substance: TOFACITINIB CITRATE
     Dosage: 10 MG, 3X/DAY
     Route: 048
     Dates: start: 2020
  11. XELJANZ [Suspect]
     Active Substance: TOFACITINIB CITRATE
     Dosage: 15 MG, 1X/DAY
     Route: 048
     Dates: start: 20200401, end: 20200423
  12. XELJANZ [Suspect]
     Active Substance: TOFACITINIB CITRATE
     Dosage: 15 MG, 1X/DAY (5 MG ONCE DAILY + 10 MG ONCE DAILY)
     Route: 048
     Dates: start: 20200601, end: 202006
  13. PREDNISONE. [Concomitant]
     Active Substance: PREDNISONE
     Dosage: 5 MG, 1X/DAY
     Dates: start: 20200207, end: 202002

REACTIONS (13)
  - Constipation [Unknown]
  - Oral candidiasis [Unknown]
  - Dyspnoea [Unknown]
  - Oropharyngeal pain [Unknown]
  - Contraindicated product administered [Unknown]
  - Back pain [Unknown]
  - Frequent bowel movements [Unknown]
  - Headache [Recovered/Resolved]
  - Off label use [Unknown]
  - Ocular vascular disorder [Not Recovered/Not Resolved]
  - Groin pain [Unknown]
  - Product use issue [Unknown]
  - Therapeutic product effect decreased [Recovering/Resolving]

NARRATIVE: CASE EVENT DATE: 2020
